FAERS Safety Report 12700038 (Version 3)
Quarter: 2016Q4

REPORT INFORMATION
  Report Type: Report from Study
  Country: PL (occurrence: PL)
  Receive Date: 20160830
  Receipt Date: 20161013
  Transmission Date: 20170207
  Serious: Yes (Hospitalization)
  Sender: FDA-Public Use
  Company Number: PL-BIOGEN-2016BI00176395

PATIENT
  Age: 60 Year
  Sex: Male
  Weight: 83 kg

DRUGS (7)
  1. DACLIZUMAB HYP [Suspect]
     Active Substance: DACLIZUMAB
     Route: 058
     Dates: start: 20160209
  2. DICLAC [Concomitant]
     Active Substance: DICLOFENAC
     Indication: ANALGESIC THERAPY
     Dates: start: 20141001
  3. NEUROVIT [Concomitant]
     Indication: SUPPLEMENTATION THERAPY
  4. DACLIZUMAB HYP [Suspect]
     Active Substance: DACLIZUMAB
     Indication: MULTIPLE SCLEROSIS
     Route: 058
     Dates: start: 20151104
  5. IPP [Concomitant]
     Active Substance: PANTOPRAZOLE SODIUM
     Indication: PROPHYLAXIS
     Dates: start: 20131110
  6. CALCIUM [Concomitant]
     Active Substance: CALCIUM
     Indication: SUPPLEMENTATION THERAPY
     Dates: start: 20151116
  7. RUTINOSCORBIN [Concomitant]
     Indication: SUPPLEMENTATION THERAPY
     Dates: start: 20151105

REACTIONS (1)
  - Granulomatosis with polyangiitis [Not Recovered/Not Resolved]

NARRATIVE: CASE EVENT DATE: 20160115
